FAERS Safety Report 6529010-5 (Version None)
Quarter: 2009Q4

REPORT INFORMATION
  Report Type: 
  Country: None (occurrence: None)
  Receive Date: 20091229
  Receipt Date: 20091210
  Transmission Date: 20100525
  Serious: Yes (Hospitalization)
  Sender: FDA-Public Use
  Company Number: 003251

PATIENT
  Sex: Male

DRUGS (11)
  1. KEPPRA [Suspect]
     Indication: EPILEPSY
     Dosage: (500 MG BID ORAL)
     Route: 048
     Dates: start: 20090618
  2. PREVISCAN /00789001/ (PREVISCAN) (NOT SPECIFIED) [Suspect]
     Indication: ARRHYTHMIA
     Dosage: (0.25 UNIT DAILY ORAL)
     Route: 048
     Dates: end: 20090625
  3. DEPAKINE CHRONO /01294701/ [Concomitant]
  4. CARDENSIEL [Concomitant]
  5. RAMIPRIL [Concomitant]
  6. AMIODARONE HCL [Concomitant]
  7. FLUDEX /00340101/ [Concomitant]
  8. TAHOR [Concomitant]
  9. KARDEGIC /00002703/ [Concomitant]
  10. RABEPRAZOLE SODIUM [Concomitant]
  11. LEVOTHYROXINE SODIUM [Concomitant]

REACTIONS (7)
  - ANAEMIA [None]
  - DRUG INTERACTION [None]
  - INTERNATIONAL NORMALISED RATIO INCREASED [None]
  - OVERDOSE [None]
  - PANCYTOPENIA [None]
  - PLATELET COUNT DECREASED [None]
  - PURPURA [None]
